FAERS Safety Report 19781053 (Version 1)
Quarter: 2021Q3

REPORT INFORMATION
  Report Type: Spontaneous
  Country: CN (occurrence: CN)
  Receive Date: 20210902
  Receipt Date: 20210902
  Transmission Date: 20211014
  Serious: Yes (Other)
  Sender: FDA-Public Use
  Company Number: CN-009507513-2108CHN007338

PATIENT
  Age: 48 Year
  Sex: Male
  Weight: 82 kg

DRUGS (5)
  1. TIENAM [Suspect]
     Active Substance: CILASTATIN SODIUM\IMIPENEM
     Dosage: 2 DOSAGE FORM, FREQUENCY: QID AND THREE TIMES PER DAY
     Dates: start: 20210725, end: 20210802
  2. TIENAM [Suspect]
     Active Substance: CILASTATIN SODIUM\IMIPENEM
     Indication: INFECTION
     Dosage: 500 MG, FOUR TIMES PER DAY, ROUTE: PUMP
     Dates: start: 20210714, end: 20210719
  3. LANSOPRAZOLE. [Concomitant]
     Active Substance: LANSOPRAZOLE
     Indication: GASTRIC MUCOSAL LESION
     Dosage: 30 MG, ONCE PER DAY
     Route: 041
     Dates: start: 20210714, end: 20210720
  4. TIENAM [Suspect]
     Active Substance: CILASTATIN SODIUM\IMIPENEM
     Dosage: 500 MG, TWICE PER DAY, ROUTE: PUMP
     Dates: start: 20210720, end: 20210721
  5. GLUTATHIONE [Concomitant]
     Active Substance: GLUTATHIONE
     Indication: LIVER DISORDER
     Dosage: 1.8 G, ONCE PER DAY
     Route: 041
     Dates: start: 20210714, end: 20210720

REACTIONS (3)
  - Heat stroke [Unknown]
  - Delirium [Recovering/Resolving]
  - Renal impairment [Unknown]

NARRATIVE: CASE EVENT DATE: 2021
